FAERS Safety Report 17481741 (Version 1)
Quarter: 2020Q1

REPORT INFORMATION
  Report Type: Report from Study
  Country: CA (occurrence: CA)
  Receive Date: 20200302
  Receipt Date: 20200302
  Transmission Date: 20200409
  Serious: Yes (Other)
  Sender: FDA-Public Use
  Company Number: CA-GLAXOSMITHKLINE-CA2020029443

PATIENT
  Sex: Female

DRUGS (2)
  1. DICLOFENAC SODIUM. [Suspect]
     Active Substance: DICLOFENAC SODIUM
     Indication: PRODUCT USED FOR UNKNOWN INDICATION
     Dosage: 75 MG, Q12H
     Route: 065
     Dates: start: 2018
  2. IBUPROFEN. [Concomitant]
     Active Substance: IBUPROFEN
     Indication: PRODUCT USED FOR UNKNOWN INDICATION
     Dosage: 400 MG, PRN
     Route: 048

REACTIONS (14)
  - Musculoskeletal stiffness [Unknown]
  - Spondyloarthropathy [Unknown]
  - Psoriasis [Unknown]
  - Limb injury [Unknown]
  - Sacroiliitis [Unknown]
  - Joint swelling [Unknown]
  - Neck pain [Unknown]
  - Fatigue [Unknown]
  - Drug ineffective [Unknown]
  - Tenderness [Unknown]
  - Back pain [Unknown]
  - Arthralgia [Unknown]
  - Discomfort [Unknown]
  - Ankylosing spondylitis [Unknown]

NARRATIVE: CASE EVENT DATE: 2018
